FAERS Safety Report 5393425-1 (Version None)
Quarter: 2007Q3

REPORT INFORMATION
  Report Type: 
  Country: None (occurrence: None)
  Receive Date: 20070719
  Receipt Date: 20070719
  Transmission Date: 20080115
  Serious: No
  Sender: FDA-Public Use
  Company Number: None

PATIENT
  Sex: Male
  Weight: 106.5953 kg

DRUGS (2)
  1. ZOSYN [Suspect]
     Indication: CORONARY ARTERY STENOSIS
     Dosage: 3.75 GM EVERY 6 HRS IV
     Route: 042
     Dates: start: 20070629, end: 20070711
  2. LEVAQUIN [Suspect]
     Dosage: 500MG DAILY IV
     Route: 042
     Dates: start: 20070629

REACTIONS (3)
  - HYPOAESTHESIA [None]
  - INFUSION RELATED REACTION [None]
  - RASH PRURITIC [None]
